FAERS Safety Report 5032792-5 (Version None)
Quarter: 2006Q2

REPORT INFORMATION
  Report Type: 
  Country: None (occurrence: None)
  Receive Date: 20060622
  Receipt Date: 20060612
  Transmission Date: 20061013
  Serious: Yes (Other)
  Sender: FDA-Public Use
  Company Number: ES-GILEAD-2006-0009767

PATIENT
  Age: 50 Year

DRUGS (3)
  1. VIREAD [Suspect]
     Indication: HIV INFECTION
  2. DIDANOSINE [Concomitant]
     Indication: HIV INFECTION
  3. EFAVIRENZ [Concomitant]
     Indication: HIV INFECTION

REACTIONS (2)
  - OBSTRUCTIVE UROPATHY [None]
  - SEPSIS [None]
